FAERS Safety Report 24433288 (Version 1)
Quarter: 2024Q4

REPORT INFORMATION
  Report Type: Report from Study
  Country: US (occurrence: US)
  Receive Date: 20241014
  Receipt Date: 20241014
  Transmission Date: 20250114
  Serious: Yes (Other)
  Sender: ALEXION PHARMACEUTICALS
  Company Number: US-AstraZeneca-CH-00716146A

PATIENT

DRUGS (24)
  1. SOLIRIS [Suspect]
     Active Substance: ECULIZUMAB
     Indication: Atypical haemolytic uraemic syndrome
     Dosage: 900 MILLIGRAM
  2. SOLIRIS [Suspect]
     Active Substance: ECULIZUMAB
     Dosage: 900 MILLIGRAM
  3. SOLIRIS [Suspect]
     Active Substance: ECULIZUMAB
     Dosage: 900 MILLIGRAM
  4. SOLIRIS [Suspect]
     Active Substance: ECULIZUMAB
     Dosage: 900 MILLIGRAM
  5. SOLIRIS [Suspect]
     Active Substance: ECULIZUMAB
     Dosage: UNK
  6. SOLIRIS [Suspect]
     Active Substance: ECULIZUMAB
     Dosage: UNK
  7. SOLIRIS [Suspect]
     Active Substance: ECULIZUMAB
     Dosage: UNK
  8. SOLIRIS [Suspect]
     Active Substance: ECULIZUMAB
     Dosage: UNK
  9. SOLIRIS [Suspect]
     Active Substance: ECULIZUMAB
     Dosage: UNK
  10. SOLIRIS [Suspect]
     Active Substance: ECULIZUMAB
     Dosage: UNK
  11. SOLIRIS [Suspect]
     Active Substance: ECULIZUMAB
     Dosage: UNK
  12. SOLIRIS [Suspect]
     Active Substance: ECULIZUMAB
     Dosage: UNK
  13. SOLIRIS [Suspect]
     Active Substance: ECULIZUMAB
     Dosage: UNK
  14. SOLIRIS [Suspect]
     Active Substance: ECULIZUMAB
     Dosage: UNK
  15. SOLIRIS [Suspect]
     Active Substance: ECULIZUMAB
     Dosage: UNK
  16. SOLIRIS [Suspect]
     Active Substance: ECULIZUMAB
     Dosage: UNK
  17. SOLIRIS [Suspect]
     Active Substance: ECULIZUMAB
     Dosage: UNK
  18. SOLIRIS [Suspect]
     Active Substance: ECULIZUMAB
     Dosage: UNK
  19. SOLIRIS [Suspect]
     Active Substance: ECULIZUMAB
     Dosage: UNK
  20. SOLIRIS [Suspect]
     Active Substance: ECULIZUMAB
     Dosage: UNK
  21. SOLIRIS [Suspect]
     Active Substance: ECULIZUMAB
     Dosage: UNK
  22. SOLIRIS [Suspect]
     Active Substance: ECULIZUMAB
     Dosage: UNK
  23. SOLIRIS [Suspect]
     Active Substance: ECULIZUMAB
     Dosage: UNK
  24. SOLIRIS [Suspect]
     Active Substance: ECULIZUMAB
     Dosage: UNK

REACTIONS (4)
  - Pneumonia [Recovered/Resolved]
  - Staphylococcal sepsis [Recovered/Resolved]
  - Coma [Unknown]
  - Blindness [Unknown]
